FAERS Safety Report 5616122-3 (Version None)
Quarter: 2008Q1

REPORT INFORMATION
  Report Type: 
  Country: None (occurrence: None)
  Receive Date: 20080201
  Receipt Date: 20080117
  Transmission Date: 20080703
  Serious: Yes (Death, Congenital Anomaly, Other)
  Sender: FDA-Public Use
  Company Number: 018215

PATIENT
  Sex: Male
  Weight: 3.7 kg

DRUGS (1)
  1. CLARAVIS [Suspect]
     Dosage: 40 MG, QD, TRANSPLACENTAL
     Route: 064
     Dates: start: 20070124, end: 20070224

REACTIONS (14)
  - APGAR SCORE LOW [None]
  - CAESAREAN SECTION [None]
  - CARDIAC DISORDER [None]
  - CARDIOVASCULAR DISORDER [None]
  - CONGENITAL ANOMALY [None]
  - CONGENITAL CENTRAL NERVOUS SYSTEM ANOMALY [None]
  - CONGENITAL CHOROIDAL ANOMALY [None]
  - CONGENITAL HYDROCEPHALUS [None]
  - CONGENITAL PULMONARY VALVE ATRESIA [None]
  - DANDY-WALKER SYNDROME [None]
  - DOUBLE OUTLET RIGHT VENTRICLE [None]
  - DRUG EXPOSURE DURING PREGNANCY [None]
  - HEAD DEFORMITY [None]
  - LOW SET EARS [None]
